FAERS Safety Report 9996486 (Version 1)
Quarter: 2014Q1

REPORT INFORMATION
  Report Type: Spontaneous
  Country: US (occurrence: None)
  Receive Date: 20140304
  Receipt Date: 20140304
  Transmission Date: 20141002
  Serious: Yes (Hospitalization, Other)
  Sender: FDA-Public Use
  Company Number: RB-59076-2013

PATIENT
  Sex: Female
  Weight: 4 kg

DRUGS (4)
  1. SUBOXONE [Suspect]
     Indication: DRUG DEPENDENCE
     Dosage: FILM; NEONATE WAS EXPOSED TO 2-8 MG DAILY DUE TO MOTHER^S CUTTING FILM TRANSPLACENTAL
     Route: 064
     Dates: start: 201206
  2. BUPRENORPHINE [Suspect]
     Indication: DRUG DEPENDENCE
     Dosage: MOTHER WAS CUTTING THE TABLET AND TAKING 2-8 MG DAILY, TRANSPLACENTAL
     Route: 064
     Dates: end: 201208
  3. NICOTINE [Suspect]
     Dosage: 1/3 PACK DAILY, TRANSPLACENTAL
     Route: 064
     Dates: start: 201206, end: 20130412
  4. PRENATAL VITAMINS [Suspect]
     Indication: PREGNANCY
     Dosage: DOSING: 1 TABLET DAILY, TRANSPLACENTAL
     Route: 064
     Dates: end: 20130412

REACTIONS (2)
  - Foetal exposure during pregnancy [None]
  - Drug withdrawal syndrome neonatal [None]
